FAERS Safety Report 10033984 (Version 2)
Quarter: 2014Q2

REPORT INFORMATION
  Report Type: Not Available
  Country: FR (occurrence: FR)
  Receive Date: 20140325
  Receipt Date: 20140522
  Transmission Date: 20141212
  Serious: Yes (Other)
  Sender: FDA-Public Use
  Company Number: FR-BEH-2014041264

PATIENT
  Age: 64 Year
  Sex: Male

DRUGS (2)
  1. HIZENTRA [Suspect]
     Route: 058
     Dates: start: 20140227
  2. HIZENTRA [Suspect]
     Route: 058
     Dates: start: 20140227

REACTIONS (1)
  - Epistaxis [Recovered/Resolved]
